FAERS Safety Report 21530418 (Version 2)
Quarter: 2022Q4

REPORT INFORMATION
  Report Type: Spontaneous
  Country: AR (occurrence: AR)
  Receive Date: 20221031
  Receipt Date: 20221114
  Transmission Date: 20230113
  Serious: Yes (Other)
  Sender: FDA-Public Use
  Company Number: AR-SA-SAC20221024000468

PATIENT

DRUGS (1)
  1. LARONIDASE [Suspect]
     Active Substance: LARONIDASE
     Indication: Mucopolysaccharidosis I
     Dosage: 30 MG, QW
     Route: 042

REACTIONS (1)
  - Endotracheal intubation complication [Recovering/Resolving]

NARRATIVE: CASE EVENT DATE: 20221018
